FAERS Safety Report 24588854 (Version 1)
Quarter: 2024Q4

REPORT INFORMATION
  Report Type: Spontaneous
  Country: GB (occurrence: GB)
  Receive Date: 20241107
  Receipt Date: 20241107
  Transmission Date: 20250115
  Serious: Yes (Life-Threatening, Hospitalization, Other)
  Sender: NORDIC PHARMA
  Company Number: None

PATIENT
  Age: 75 Year
  Sex: Female
  Weight: 57 kg

DRUGS (2)
  1. METHOTREXATE [Suspect]
     Active Substance: METHOTREXATE
     Indication: Rheumatoid arthritis
     Route: 058
     Dates: start: 2014, end: 2019
  2. UPADACITINIB [Concomitant]
     Active Substance: UPADACITINIB
     Indication: Rheumatoid arthritis
     Dates: start: 20210901, end: 20240901

REACTIONS (1)
  - Angiosarcoma metastatic [Not Recovered/Not Resolved]

NARRATIVE: CASE EVENT DATE: 20240906
